FAERS Safety Report 7988620-9 (Version None)
Quarter: 2011Q4

REPORT INFORMATION
  Report Type: 
  Country: None (occurrence: None)
  Receive Date: 20111218
  Receipt Date: 20060801
  Transmission Date: 20120403
  Serious: Yes (Other)
  Sender: FDA-Public Use
  Company Number: PHHY2006CL009343

PATIENT
  Age: 78 Year
  Sex: Female

DRUGS (1)
  1. MIACALCIN [Suspect]

REACTIONS (3)
  - ANKLE FRACTURE [None]
  - HAND FRACTURE [None]
  - HYPERTENSION [None]
